FAERS Safety Report 18250212 (Version 7)
Quarter: 2021Q1

REPORT INFORMATION
  Report Type: Report from Study
  Country: US (occurrence: US)
  Receive Date: 20200910
  Receipt Date: 20210120
  Transmission Date: 20210419
  Serious: Yes (Hospitalization, Other)
  Sender: FDA-Public Use
  Company Number: NVSC2020US245395

PATIENT
  Sex: Female
  Weight: 75.74 kg

DRUGS (4)
  1. TREPROSTINIL. [Suspect]
     Active Substance: TREPROSTINIL
     Dosage: UNK UNK, CONT (18 NG/KG/MIN, CONTINUOUS)
     Route: 042
  2. TREPROSTINIL. [Suspect]
     Active Substance: TREPROSTINIL
     Dosage: UNK UNK, CONT (29 NG/KG/MIN)
     Route: 042
  3. EPOPROSTENOL. [Concomitant]
     Active Substance: EPOPROSTENOL
     Indication: PRODUCT USED FOR UNKNOWN INDICATION
     Dosage: UNK (TEVA)
     Route: 065
  4. TREPROSTINIL. [Suspect]
     Active Substance: TREPROSTINIL
     Indication: PULMONARY ARTERIAL HYPERTENSION
     Dosage: 13 UNK, QD (NG/KG/MIN)
     Route: 042
     Dates: start: 20200831

REACTIONS (11)
  - Dyspnoea [Unknown]
  - Back disorder [Unknown]
  - Musculoskeletal discomfort [Unknown]
  - Dizziness [Unknown]
  - Skin infection [Unknown]
  - Pulmonary arterial hypertension [Unknown]
  - Sepsis [Unknown]
  - Device related infection [Unknown]
  - Abdominal pain upper [Unknown]
  - Condition aggravated [Unknown]
  - Vomiting [Unknown]
